FAERS Safety Report 6018803-9 (Version None)
Quarter: 2008Q4

REPORT INFORMATION
  Report Type: 
  Country: None (occurrence: None)
  Receive Date: 20081222
  Receipt Date: 20081205
  Transmission Date: 20090506
  Serious: Yes (Hospitalization)
  Sender: FDA-Public Use
  Company Number: KV200801001

PATIENT
  Age: 81 Year
  Sex: Female
  Weight: 46.7 kg

DRUGS (4)
  1. MORPHINE SULFATE [Suspect]
     Indication: ARTHRALGIA
     Dosage: 15MG,
     Dates: start: 20080812, end: 20080818
  2. PORPHORIN [Concomitant]
  3. MULTIVITAMIN [Concomitant]
  4. VICODIN [Concomitant]

REACTIONS (1)
  - PAIN [None]
